FAERS Safety Report 25670825 (Version 2)
Quarter: 2025Q3

REPORT INFORMATION
  Report Type: Spontaneous
  Country: US (occurrence: US)
  Receive Date: 20250812
  Receipt Date: 20250916
  Transmission Date: 20251020
  Serious: No
  Sender: MYLAN
  Company Number: US-MYLANLABS-2025M1061821

PATIENT
  Sex: Male

DRUGS (4)
  1. BREYNA [Suspect]
     Active Substance: BUDESONIDE\FORMOTEROL FUMARATE
     Indication: Chronic obstructive pulmonary disease
     Dosage: 160/9 MICROGRAM, BID (TWO PUFF TWICE A DAY)
     Dates: start: 202506
  2. BREYNA [Suspect]
     Active Substance: BUDESONIDE\FORMOTEROL FUMARATE
     Indication: Asthma
     Dosage: 160/9 MICROGRAM, BID (TWO PUFF TWICE A DAY)
     Route: 055
     Dates: start: 202506
  3. BREYNA [Suspect]
     Active Substance: BUDESONIDE\FORMOTEROL FUMARATE
     Dosage: 160/9 MICROGRAM, BID (TWO PUFF TWICE A DAY)
     Route: 055
     Dates: start: 202506
  4. BREYNA [Suspect]
     Active Substance: BUDESONIDE\FORMOTEROL FUMARATE
     Dosage: 160/9 MICROGRAM, BID (TWO PUFF TWICE A DAY)
     Dates: start: 202506

REACTIONS (4)
  - Wrong technique in device usage process [Unknown]
  - Device difficult to use [Unknown]
  - Product outer packaging issue [Unknown]
  - Device issue [Unknown]

NARRATIVE: CASE EVENT DATE: 20250101
